FAERS Safety Report 16646025 (Version 2)
Quarter: 2019Q3

REPORT INFORMATION
  Report Type: Report from Study
  Country: None (occurrence: JP)
  Receive Date: 20190730
  Receipt Date: 20190903
  Transmission Date: 20191004
  Serious: Yes (Hospitalization)
  Sender: FDA-Public Use
  Company Number: JP-ABBVIE-17P-087-2057100-00

PATIENT
  Age: 61 Year
  Sex: Female
  Weight: 55 kg

DRUGS (41)
  1. DUODOPA [Suspect]
     Active Substance: CARBIDOPA\LEVODOPA
     Dosage: MD: 7.5 ML, CD: 3.1 ML/HR X 16 HR, ED: 1.5 ML/UNIT X2
     Route: 050
     Dates: start: 20170626, end: 20170829
  2. DUODOPA [Suspect]
     Active Substance: CARBIDOPA\LEVODOPA
     Dosage: MD 7.5 ML?CD 3.3 ML/HR ? 16 HOURS?ED 1.5 ML ? 3 TIMES
     Route: 050
     Dates: start: 20180605, end: 20180619
  3. ROTIGOTINE [Concomitant]
     Active Substance: ROTIGOTINE
     Dates: start: 20170629, end: 20170706
  4. LANSOPRAZOLE. [Concomitant]
     Active Substance: LANSOPRAZOLE
     Indication: PRODUCT USED FOR UNKNOWN INDICATION
     Route: 048
     Dates: end: 20181211
  5. QUETIAPINE FUMARATE. [Concomitant]
     Active Substance: QUETIAPINE FUMARATE
     Dates: start: 20170713, end: 20170719
  6. AMANTADINE HYDROCHLORIDE. [Concomitant]
     Active Substance: AMANTADINE HYDROCHLORIDE
     Indication: PARKINSON^S DISEASE
     Route: 048
     Dates: start: 20190227, end: 20190305
  7. DUODOPA [Suspect]
     Active Substance: CARBIDOPA\LEVODOPA
     Dosage: MD: 2.4 ML, CD: 2.3 ML/HR X 16 HR
     Route: 050
     Dates: start: 20170616, end: 20170616
  8. DUODOPA [Suspect]
     Active Substance: CARBIDOPA\LEVODOPA
     Dosage: MD: 3.5 ML, CD: 2.9 ML/HR X 16 HR, ED: 0.5 ML/UNIT X1
     Route: 050
     Dates: start: 20170616, end: 20170619
  9. DUODOPA [Suspect]
     Active Substance: CARBIDOPA\LEVODOPA
     Dosage: MD: 7.5 ML, CD: 3.2 ML/HR X 16 HR, ED: 1.5 ML/UNIT X1
     Route: 050
     Dates: start: 20170622, end: 20170622
  10. DUODOPA [Suspect]
     Active Substance: CARBIDOPA\LEVODOPA
     Dosage: MD: 2.4 ML, CD: 2.6 ML/HR X 16 HR
     Route: 050
     Dates: start: 20170616, end: 20170616
  11. DUODOPA [Suspect]
     Active Substance: CARBIDOPA\LEVODOPA
     Dosage: MD: 3.5 ML, CD: 3.2 ML/HR X 16 HR, ED: 1.0 ML/UNIT X1
     Route: 050
     Dates: start: 20170620, end: 20170622
  12. DUODOPA [Suspect]
     Active Substance: CARBIDOPA\LEVODOPA
     Dosage: MD: 4.5 ML, CD: 3.2 ML/HR X 16 HR, ED: 1.5 ML/UNIT X1
     Route: 050
     Dates: start: 20170622, end: 20170622
  13. DUODOPA [Suspect]
     Active Substance: CARBIDOPA\LEVODOPA
     Dosage: MD: 7.5 ML, CD: 3.2 ML/HR X 16 HR, ED: 1.5 ML/UNIT X2
     Route: 050
     Dates: start: 20170829, end: 20170911
  14. ROTIGOTINE [Concomitant]
     Active Substance: ROTIGOTINE
     Indication: PARKINSON^S DISEASE
     Route: 062
     Dates: end: 20170629
  15. MIRTAZAPINE. [Concomitant]
     Active Substance: MIRTAZAPINE
     Indication: PRODUCT USED FOR UNKNOWN INDICATION
     Route: 048
     Dates: end: 20170705
  16. QUETIAPINE FUMARATE. [Concomitant]
     Active Substance: QUETIAPINE FUMARATE
     Indication: PRODUCT USED FOR UNKNOWN INDICATION
     Route: 048
     Dates: start: 20171205, end: 20180924
  17. AMANTADINE HYDROCHLORIDE. [Concomitant]
     Active Substance: AMANTADINE HYDROCHLORIDE
     Indication: AKINESIA
  18. ROTIGOTINE [Concomitant]
     Active Substance: ROTIGOTINE
     Dates: start: 20170816
  19. CLONAZEPAM. [Concomitant]
     Active Substance: CLONAZEPAM
     Indication: PRODUCT USED FOR UNKNOWN INDICATION
     Route: 048
  20. AMANTADINE HYDROCHLORIDE. [Concomitant]
     Active Substance: AMANTADINE HYDROCHLORIDE
     Indication: DYSKINESIA
     Route: 048
     Dates: start: 20190306
  21. DUODOPA [Suspect]
     Active Substance: CARBIDOPA\LEVODOPA
     Dosage: MD: 7.5 ML, CD: 3.0 ML/HR X 16 HR, ED: 1.5 ML/UNIT X2
     Route: 050
     Dates: start: 20170622, end: 20170626
  22. DUODOPA [Suspect]
     Active Substance: CARBIDOPA\LEVODOPA
     Dosage: MD: 7.5 ML, CD: 3.1 ML/HR X 16 HR, ED: 1.5 ML/UNIT X2
     Route: 050
     Dates: start: 20170911
  23. DUODOPA [Suspect]
     Active Substance: CARBIDOPA\LEVODOPA
     Dosage: MD 7.5 ML CD 3.1 ML/HR ? 16 HOURS ED 1.5 ML ? 2 TIMES
     Route: 050
     Dates: start: 20170811, end: 20180227
  24. DUODOPA [Suspect]
     Active Substance: CARBIDOPA\LEVODOPA
     Dosage: MD 7.5 ML CD 3.5 ML/HR ? 16 HOURS ED 1.5 ML ? 3 TIMES
     Route: 050
     Dates: start: 20180327, end: 20180522
  25. DUODOPA [Suspect]
     Active Substance: CARBIDOPA\LEVODOPA
     Dosage: MD 7.5 ML CD 3.1 ML/HRS ? 16 HRS ED 1.5 ML/UNIT ? 2 TIMES
     Route: 050
     Dates: start: 20180724, end: 20180918
  26. ROTIGOTINE [Concomitant]
     Active Substance: ROTIGOTINE
     Dates: start: 20170706, end: 20170815
  27. MIRTAZAPINE. [Concomitant]
     Active Substance: MIRTAZAPINE
     Dates: start: 20170706, end: 20170731
  28. QUETIAPINE FUMARATE. [Concomitant]
     Active Substance: QUETIAPINE FUMARATE
     Dates: start: 20170720, end: 20170724
  29. PYRIDOXAL PHOSPHATE HYDRATE [Concomitant]
     Indication: PROPHYLAXIS
  30. DUODOPA [Suspect]
     Active Substance: CARBIDOPA\LEVODOPA
     Dosage: MD: 4.5 ML, CD: 3.2 ML/HR X 16 HR, ED: 1.0 ML/UNIT X1
     Route: 050
     Dates: start: 20170622, end: 20170622
  31. DUODOPA [Suspect]
     Active Substance: CARBIDOPA\LEVODOPA
     Dosage: MD 7.5 ML CD 3.2 ML/HR ? 16 HOURS ED 1.5 ML ? 3 TIMES
     Route: 050
     Dates: start: 20180227, end: 20180303
  32. SUVOREXANT. [Concomitant]
     Active Substance: SUVOREXANT
     Indication: PRODUCT USED FOR UNKNOWN INDICATION
     Route: 048
     Dates: start: 20170912
  33. DUODOPA [Suspect]
     Active Substance: CARBIDOPA\LEVODOPA
     Indication: PARKINSON^S DISEASE
     Dosage: MD: 2.4 ML, CD: 2.0 ML/HR X 16 HR
     Route: 050
     Dates: start: 20170615, end: 20170615
  34. DUODOPA [Suspect]
     Active Substance: CARBIDOPA\LEVODOPA
     Dosage: MD 7.5 ML CD 3.3 ML/HR ? 16 HOURS ED 1.5 ML ? 3 TIMES
     Route: 050
     Dates: start: 20180303, end: 20180327
  35. DUODOPA [Suspect]
     Active Substance: CARBIDOPA\LEVODOPA
     Dosage: MD 7.5 ML CD 3.4 ML/HR ? 16 HOURS ED 1.5 ML ? 3 TIMES
     Route: 050
     Dates: start: 20180522, end: 20180605
  36. DUODOPA [Suspect]
     Active Substance: CARBIDOPA\LEVODOPA
     Dosage: MD: 7.5 ML/ CD: 3.0 ML/HR ? 16 HRS/ ED: 1.5 ML/UNIT ? 2 TIMES
     Route: 050
     Dates: start: 20180919
  37. METHYL SALICYLATE [Concomitant]
     Active Substance: METHYL SALICYLATE
     Indication: PRODUCT USED FOR UNKNOWN INDICATION
     Route: 062
     Dates: start: 20171024, end: 20171127
  38. DUODOPA [Suspect]
     Active Substance: CARBIDOPA\LEVODOPA
     Dosage: MD: 3.5 ML, CD: 2.6 ML/HR X 16 HR
     Route: 050
     Dates: start: 20170616, end: 20170616
  39. DUODOPA [Suspect]
     Active Substance: CARBIDOPA\LEVODOPA
     Dosage: MD: 3.5 ML, CD: 3.2 ML/HR X 16 HR, ED: 0.5 ML/UNIT X1
     Route: 050
     Dates: start: 20170619, end: 20170620
  40. DUODOPA [Suspect]
     Active Substance: CARBIDOPA\LEVODOPA
     Dosage: MD 7.5 ML CD 3.2 ML/HR ? 16 HOURS ED 1.5 ML ? 3 TIMES
     Route: 050
     Dates: start: 20180619, end: 20180724
  41. SENNA LEAF/POD [Concomitant]
     Indication: PRODUCT USED FOR UNKNOWN INDICATION
     Route: 048

REACTIONS (15)
  - Nocturia [Not Recovered/Not Resolved]
  - Hypercholesterolaemia [Not Recovered/Not Resolved]
  - Decreased appetite [Recovered/Resolved]
  - Stoma site erythema [Recovered/Resolved]
  - Insomnia [Not Recovered/Not Resolved]
  - Stoma site infection [Not Recovered/Not Resolved]
  - Erythema [Recovering/Resolving]
  - Stoma site hypergranulation [Recovering/Resolving]
  - Vitamin B6 deficiency [Recovered/Resolved]
  - Posture abnormal [Recovering/Resolving]
  - Stoma site erythema [Recovered/Resolved]
  - Stoma site pain [Recovering/Resolving]
  - Medical device entrapment [Recovered/Resolved]
  - Dyskinesia [Not Recovered/Not Resolved]
  - Dyskinesia [Recovered/Resolved]

NARRATIVE: CASE EVENT DATE: 20170622
